FAERS Safety Report 15129692 (Version 2)
Quarter: 2018Q3

REPORT INFORMATION
  Report Type: Spontaneous
  Country: US (occurrence: US)
  Receive Date: 20180711
  Receipt Date: 20180907
  Transmission Date: 20181010
  Serious: No
  Sender: FDA-Public Use
  Company Number: US-SA-2018SA180052

PATIENT
  Age: 35 Year
  Sex: Male

DRUGS (5)
  1. DUPIXENT [Suspect]
     Active Substance: DUPILUMAB
     Dosage: 600 MG, 1X
     Route: 058
     Dates: start: 201803
  2. NAPROXEN. [Concomitant]
     Active Substance: NAPROXEN
  3. DUPIXENT [Suspect]
     Active Substance: DUPILUMAB
     Dosage: 300 MG, QOW
  4. GABAPENTIN. [Concomitant]
     Active Substance: GABAPENTIN
  5. ROBAXIN [Concomitant]
     Active Substance: METHOCARBAMOL

REACTIONS (3)
  - Seasonal allergy [Unknown]
  - Nasopharyngitis [Unknown]
  - Drug ineffective [Unknown]

NARRATIVE: CASE EVENT DATE: 20180626
